FAERS Safety Report 7756421-2 (Version None)
Quarter: 2011Q3

REPORT INFORMATION
  Report Type: 
  Country: None (occurrence: None)
  Receive Date: 20110915
  Receipt Date: 20110915
  Transmission Date: 20111222
  Serious: Yes (Hospitalization)
  Sender: FDA-Public Use
  Company Number: None

PATIENT
  Age: 63 Year
  Sex: Male
  Weight: 127.3 kg

DRUGS (3)
  1. LISINOPRIL AND HYDROCHLOROTHIAZIDE [Suspect]
     Indication: DIABETES MELLITUS
     Dosage: 25/20 EVERY DAY PO
     Route: 048
     Dates: start: 20080818, end: 20110718
  2. LISINOPRIL AND HYDROCHLOROTHIAZIDE [Suspect]
     Indication: CARDIAC FAILURE CONGESTIVE
     Dosage: 25/20 EVERY DAY PO
     Route: 048
     Dates: start: 20080818, end: 20110718
  3. LISINOPRIL AND HYDROCHLOROTHIAZIDE [Suspect]
     Indication: HYPERTENSION
     Dosage: 25/20 EVERY DAY PO
     Route: 048
     Dates: start: 20080818, end: 20110718

REACTIONS (1)
  - ANGIOEDEMA [None]
